FAERS Safety Report 4420836-0 (Version None)
Quarter: 2004Q3

REPORT INFORMATION
  Report Type: 
  Country: None (occurrence: None)
  Receive Date: 20040809
  Receipt Date: 20040729
  Transmission Date: 20050211
  Serious: Yes (Other)
  Sender: FDA-Public Use
  Company Number: US-JNJFOC-20040708135

PATIENT
  Age: 42 Year
  Sex: Male

DRUGS (4)
  1. NATRECOR [Suspect]
     Route: 042
  2. LASIX [Suspect]
     Dosage: AT NIGHT
  3. LASIX [Suspect]
     Indication: DIURETIC THERAPY
     Dosage: IN THE MORNING
  4. METOLAZONE [Suspect]
     Indication: DIURETIC THERAPY
     Dosage: 30 MINUTES PRIOR TO FUROSEMIDE
     Route: 049

REACTIONS (2)
  - DRUG INTERACTION [None]
  - HYPOKALAEMIA [None]
